FAERS Safety Report 25294002 (Version 1)
Quarter: 2025Q2

REPORT INFORMATION
  Report Type: Spontaneous
  Country: US (occurrence: US)
  Receive Date: 20250510
  Receipt Date: 20250510
  Transmission Date: 20250717
  Serious: No
  Sender: UCB
  Company Number: US-UCBSA-2024018930

PATIENT
  Sex: Male
  Weight: 90.431 kg

DRUGS (1)
  1. CIMZIA [Suspect]
     Active Substance: CERTOLIZUMAB PEGOL
     Indication: Ankylosing spondylitis
     Dosage: 400 MG UNDER THE SKIN AT 0,2 AND 4 WEEKS
     Route: 058
     Dates: start: 202402

REACTIONS (4)
  - Arthralgia [Unknown]
  - Insomnia [Unknown]
  - Neck pain [Unknown]
  - Back pain [Unknown]

NARRATIVE: CASE EVENT DATE: 20240101
